FAERS Safety Report 4791434-4 (Version None)
Quarter: 2005Q4

REPORT INFORMATION
  Report Type: 
  Country: None (occurrence: None)
  Receive Date: 20051007
  Receipt Date: 20050808
  Transmission Date: 20060501
  Serious: Yes (Other)
  Sender: FDA-Public Use
  Company Number: US-ROCHE-413698

PATIENT
  Sex: Male
  Weight: 3.1 kg

DRUGS (3)
  1. ACCUTANE [Suspect]
     Indication: ACNE
     Dates: start: 19930129, end: 19930615
  2. AMBIEN [Concomitant]
  3. PRENATAL VITAMINS [Concomitant]

REACTIONS (10)
  - APGAR SCORE LOW [None]
  - CAESAREAN SECTION [None]
  - FOETAL HEART RATE DECELERATION [None]
  - JAUNDICE [None]
  - JAUNDICE NEONATAL [None]
  - NEONATAL RESPIRATORY DISTRESS SYNDROME [None]
  - POOR SUCKING REFLEX [None]
  - RESPIRATORY DEPRESSION [None]
  - TRANSVERSE PRESENTATION [None]
  - UMBILICAL CORD ABNORMALITY [None]
